FAERS Safety Report 5924554-9 (Version None)
Quarter: 2008Q4

REPORT INFORMATION
  Report Type: 
  Country: None (occurrence: None)
  Receive Date: 20081020
  Receipt Date: 20081008
  Transmission Date: 20090506
  Serious: Yes (Other)
  Sender: FDA-Public Use
  Company Number: BR-PFIZER INC-2008085213

PATIENT
  Sex: Male
  Weight: 66 kg

DRUGS (4)
  1. LONITEN [Suspect]
     Indication: HYPERTENSION
     Route: 048
     Dates: start: 20070101
  2. CAPTOPRIL [Concomitant]
  3. PROPRANOLOL [Concomitant]
  4. METHYLDOPA [Concomitant]

REACTIONS (3)
  - DIABETES MELLITUS [None]
  - HAEMODIALYSIS [None]
  - RENAL DISORDER [None]
